FAERS Safety Report 7990390-5 (Version None)
Quarter: 2011Q4

REPORT INFORMATION
  Report Type: 
  Country: None (occurrence: None)
  Receive Date: 20111219
  Receipt Date: 20110307
  Transmission Date: 20120403
  Serious: No
  Sender: FDA-Public Use
  Company Number: US-ASTRAZENECA-2011SE13053

PATIENT
  Sex: Male

DRUGS (1)
  1. CRESTOR [Suspect]
     Dosage: 20 MILLIGRAMS, DAILY AND SIX DAYS PER WEEK.
     Route: 048

REACTIONS (1)
  - PAIN IN EXTREMITY [None]
